FAERS Safety Report 25202368 (Version 1)
Quarter: 2025Q2

REPORT INFORMATION
  Report Type: Spontaneous
  Country: BR (occurrence: BR)
  Receive Date: 20250416
  Receipt Date: 20250416
  Transmission Date: 20250716
  Serious: Yes (Other)
  Sender: AUROBINDO
  Company Number: BR-AUROBINDO-AUR-APL-2024-005295

PATIENT
  Age: 50 Year
  Sex: Female

DRUGS (1)
  1. BELEODAQ [Suspect]
     Active Substance: BELINOSTAT
     Indication: T-cell lymphoma
     Route: 065

REACTIONS (2)
  - Condition aggravated [Unknown]
  - Lymphadenopathy [Unknown]
